FAERS Safety Report 7403251-7 (Version None)
Quarter: 2011Q1

REPORT INFORMATION
  Report Type: 
  Country: None (occurrence: None)
  Receive Date: 20110301
  Receipt Date: 20100611
  Transmission Date: 20110831
  Serious: Yes (Other)
  Sender: FDA-Public Use
  Company Number: US-JNJFOC-20100503304

PATIENT
  Age: 24 Month
  Sex: Female
  Weight: 13.6079 kg

DRUGS (3)
  1. CONCENTRATED MOTRIN INFANTS DROPS [Suspect]
     Indication: PYREXIA
     Dosage: 1 IN 1 AS NECESSARY, ORAL
     Route: 048
     Dates: start: 20100203, end: 20100502
  2. CONCENTRATED TYLENOL INFANT DROPS [Suspect]
     Indication: PYREXIA
     Dosage: IN 1 AS NECESSARY, ORAL
     Route: 048
     Dates: start: 20100203, end: 20100501
  3. CHILDREN'S MOTRIN [Suspect]
     Indication: PYREXIA
     Dosage: 1 IN 1 AS NECESSARY, ORAL
     Route: 048
     Dates: start: 20100203, end: 20100502

REACTIONS (2)
  - PRODUCT QUALITY ISSUE [None]
  - DIZZINESS [None]
